FAERS Safety Report 8012194-X (Version None)
Quarter: 2011Q4

REPORT INFORMATION
  Report Type: 
  Country: None (occurrence: None)
  Receive Date: 20111228
  Receipt Date: 20111220
  Transmission Date: 20120403
  Serious: Yes (Other)
  Sender: FDA-Public Use
  Company Number: PHHY2011GB111226

PATIENT
  Age: 49 Year
  Sex: Female

DRUGS (5)
  1. FLUOXETINE [Suspect]
     Indication: ANXIETY
     Dosage: UNK UKN, UNK
     Dates: start: 20110901
  2. CLARITHROMYCIN [Interacting]
     Indication: LOWER RESPIRATORY TRACT INFECTION
     Dosage: UNK UKN, UNK
  3. TOLTERODINE TARTRATE [Interacting]
     Indication: POLLAKIURIA
  4. FLUOXETINE [Interacting]
     Indication: DEPRESSION
  5. TOLTERODINE TARTRATE [Interacting]
     Indication: BLADDER IRRITATION
     Dosage: 04 MG, QD
     Route: 048
     Dates: start: 20111018

REACTIONS (2)
  - EPILEPSY [None]
  - DRUG INTERACTION [None]
